FAERS Safety Report 10152366 (Version 1)
Quarter: 2014Q2

REPORT INFORMATION
  Report Type: Spontaneous
  Country: US (occurrence: None)
  Receive Date: 20140502
  Receipt Date: 20140502
  Transmission Date: 20141212
  Serious: Yes (Life-Threatening, Other)
  Sender: FDA-Public Use
  Company Number: None

PATIENT
  Age: 74 Year
  Sex: Male
  Weight: 121.56 kg

DRUGS (11)
  1. BRILINTA [Suspect]
     Indication: CORONARY ARTERIAL STENT INSERTION
     Dates: start: 20130803, end: 20140305
  2. ASPIRIN LOW DOSE [Suspect]
     Indication: DRUG THERAPY
     Dates: start: 20130803, end: 20140312
  3. DIOVAN [Concomitant]
  4. FINASTERIDE [Concomitant]
  5. PLAVIX [Concomitant]
  6. ATORVASTATIN [Concomitant]
  7. CPAP MACHINE [Concomitant]
  8. CO Q10 [Concomitant]
  9. FOLIC ACID [Concomitant]
  10. VITAMIN D3 [Concomitant]
  11. B12 [Concomitant]

REACTIONS (6)
  - Haematochezia [None]
  - Contusion [None]
  - Epistaxis [None]
  - Fatigue [None]
  - Dyspnoea [None]
  - Anaemia [None]
